FAERS Safety Report 14803150 (Version 1)
Quarter: 2018Q2

REPORT INFORMATION
  Report Type: Spontaneous
  Country: FR (occurrence: FR)
  Receive Date: 20180425
  Receipt Date: 20180425
  Transmission Date: 20180711
  Serious: Yes (Other)
  Sender: FDA-Public Use
  Company Number: FR-MERCK KGAA-2046423

PATIENT
  Age: 48 Year
  Sex: Female
  Weight: 53 kg

DRUGS (1)
  1. NOVOTHYROX [Suspect]
     Active Substance: LEVOTHYROXINE SODIUM
     Indication: POST PROCEDURAL HYPOTHYROIDISM
     Route: 048
     Dates: start: 201706

REACTIONS (27)
  - Myalgia [None]
  - Onychoclasis [None]
  - Depression [None]
  - Fatigue [None]
  - Emotional distress [None]
  - Tachycardia [None]
  - Insomnia [None]
  - Respiratory distress [None]
  - Asthenia [None]
  - Headache [None]
  - Mood swings [None]
  - Crying [None]
  - Loss of personal independence in daily activities [None]
  - Blood thyroid stimulating hormone decreased [Recovered/Resolved]
  - Memory impairment [None]
  - Dizziness [None]
  - Blood thyroid stimulating hormone increased [Recovered/Resolved]
  - Alopecia [None]
  - Disturbance in attention [None]
  - Impaired work ability [None]
  - Hot flush [None]
  - Anger [None]
  - Irritability [None]
  - Dyspepsia [None]
  - Impatience [None]
  - Arthralgia [None]
  - Nausea [None]

NARRATIVE: CASE EVENT DATE: 2017
